FAERS Safety Report 9549585 (Version 1)
Quarter: 2013Q3

REPORT INFORMATION
  Report Type: Spontaneous
  Country: US (occurrence: US)
  Receive Date: 20130924
  Receipt Date: 20130924
  Transmission Date: 20140515
  Serious: Yes (Death, Other)
  Sender: FDA-Public Use
  Company Number: US-009507513-1209USA005836

PATIENT
  Age: 42 Year
  Sex: Male

DRUGS (3)
  1. SAPHRIS [Suspect]
     Route: 048
  2. FANAPT [Suspect]
     Route: 048
  3. PAXIL [Concomitant]

REACTIONS (2)
  - Neoplasm malignant [Fatal]
  - Suicidal ideation [Fatal]
